FAERS Safety Report 6305988-X (Version None)
Quarter: 2009Q3

REPORT INFORMATION
  Report Type: 
  Country: None (occurrence: None)
  Receive Date: 20090810
  Receipt Date: 20090810
  Transmission Date: 20100115
  Serious: Yes (Other)
  Sender: FDA-Public Use
  Company Number: None

PATIENT
  Age: 81 Year
  Sex: Male
  Weight: 64.4 kg

DRUGS (1)
  1. METOPROLOL SUCCINATE [Suspect]
     Indication: HYPERTENSION
     Dosage: 100 MG DAILY INJ
     Dates: start: 20090430, end: 20090510

REACTIONS (3)
  - BLOOD PRESSURE SYSTOLIC INCREASED [None]
  - NO THERAPEUTIC RESPONSE [None]
  - SHORT-BOWEL SYNDROME [None]
